FAERS Safety Report 6471425-8 (Version None)
Quarter: 2009Q4

REPORT INFORMATION
  Report Type: 
  Country: None (occurrence: None)
  Receive Date: 20091203
  Receipt Date: 20091125
  Transmission Date: 20100525
  Serious: Yes (Hospitalization, Other)
  Sender: FDA-Public Use
  Company Number: FR-PFIZER INC-2006148059

PATIENT
  Age: 61 Year
  Sex: Male
  Weight: 71 kg

DRUGS (6)
  1. TAHOR [Suspect]
     Indication: ACUTE CORONARY SYNDROME
     Dosage: 40
  2. LISINOPRIL [Concomitant]
     Route: 048
     Dates: start: 20030918
  3. TENORDATE [Concomitant]
     Dates: start: 20030908
  4. PLAVIX [Concomitant]
     Dates: start: 20030918
  5. ZOCOR [Concomitant]
     Dosage: UNK
  6. EZETIMIBE [Concomitant]
     Route: 048
     Dates: start: 20061109

REACTIONS (4)
  - BLOOD CHOLESTEROL INCREASED [None]
  - CONDITION AGGRAVATED [None]
  - HEPATITIS [None]
  - PYREXIA [None]
